FAERS Safety Report 16117176 (Version 1)
Quarter: 2019Q1

REPORT INFORMATION
  Report Type: Spontaneous
  Country: JP (occurrence: JP)
  Receive Date: 20190326
  Receipt Date: 20190326
  Transmission Date: 20190418
  Serious: Yes (Other)
  Sender: FDA-Public Use
  Company Number: JP-ROCHE-2286775

PATIENT
  Sex: Male
  Weight: 34 kg

DRUGS (19)
  1. DANTRIUM [Concomitant]
     Active Substance: DANTROLENE SODIUM
     Route: 048
  2. TIZANIDINE. [Concomitant]
     Active Substance: TIZANIDINE
     Route: 048
  3. CROMOGLICATE SODIUM [Concomitant]
     Active Substance: CROMOLYN SODIUM
     Dosage: DOSAGE IS UNCERTAIN.
     Route: 045
  4. CELLCEPT [Suspect]
     Active Substance: MYCOPHENOLATE MOFETIL\MYCOPHENOLATE MOFETIL HYDROCHLORIDE
     Indication: PRODUCT USED FOR UNKNOWN INDICATION
     Route: 065
  5. CLINDAMYCIN. [Concomitant]
     Active Substance: CLINDAMYCIN
     Route: 003
  6. CELLCEPT [Suspect]
     Active Substance: MYCOPHENOLATE MOFETIL\MYCOPHENOLATE MOFETIL HYDROCHLORIDE
     Route: 065
     Dates: start: 201901
  7. ZONISAMIDE. [Concomitant]
     Active Substance: ZONISAMIDE
     Route: 048
  8. PATANOL [Concomitant]
     Active Substance: OLOPATADINE HYDROCHLORIDE
     Dosage: DOSAGE IS UNCERTAIN.
     Route: 047
  9. HEPARINOID [Concomitant]
     Active Substance: CHONDROITIN SULFATE (BOVINE)
     Dosage: DOSAGE IS UNCERTAIN.
     Route: 003
  10. ALFAROL [Concomitant]
     Active Substance: ALFACALCIDOL
     Route: 048
  11. RACOL-NF [Concomitant]
     Route: 050
  12. DIAZEPAM. [Concomitant]
     Active Substance: DIAZEPAM
     Route: 048
  13. OLOPATADINE HYDROCHLORIDE. [Concomitant]
     Active Substance: OLOPATADINE HYDROCHLORIDE
     Route: 048
  14. CAFFEINE AND SODIUM BENZOATE [Concomitant]
     Active Substance: CAFFEINE\SODIUM BENZOATE
     Route: 048
  15. LAMOTRIGIN [Concomitant]
     Active Substance: LAMOTRIGINE
     Route: 048
  16. RIVOTRIL [Concomitant]
     Active Substance: CLONAZEPAM
     Route: 048
  17. CROMOGLICATE SODIUM [Concomitant]
     Active Substance: CROMOLYN SODIUM
     Route: 048
  18. KENEI G [Concomitant]
     Active Substance: GLYCERIN
     Dosage: DOSAGE IS UNCERTAIN.
     Route: 054
  19. OFLOXIN [Concomitant]
     Dosage: DOSAGE IS UNCERTAIN.
     Route: 047

REACTIONS (3)
  - Epilepsy [Unknown]
  - Off label use [Unknown]
  - Incorrect route of product administration [Unknown]
